FAERS Safety Report 4350460-X (Version None)
Quarter: 2004Q2

REPORT INFORMATION
  Report Type: 
  Country: None (occurrence: None)
  Receive Date: 20040427
  Receipt Date: 20040419
  Transmission Date: 20050107
  Serious: Yes (Other)
  Sender: FDA-Public Use
  Company Number: 2004209512US

PATIENT
  Age: 48 Year
  Sex: Male

DRUGS (5)
  1. ZYVOX [Suspect]
     Indication: SINUSITIS
     Dosage: 600 M G, QD
     Dates: start: 20040329, end: 20040330
  2. LEXAPRO [Suspect]
     Indication: DEPRESSION
     Dosage: 10 MG, QD, ORAL
     Route: 048
     Dates: start: 20040329, end: 20040330
  3. VANCOMYCIN [Concomitant]
  4. LORTAB [Concomitant]
  5. CATAPRES [Concomitant]

REACTIONS (14)
  - BURNING SENSATION [None]
  - CHEST DISCOMFORT [None]
  - DIARRHOEA [None]
  - DRUG INTERACTION [None]
  - DYSGEUSIA [None]
  - HYPERHIDROSIS [None]
  - HYPERTENSION [None]
  - MARKEDLY REDUCED DIETARY INTAKE [None]
  - MUSCLE RIGIDITY [None]
  - MYALGIA [None]
  - MYDRIASIS [None]
  - PAROSMIA [None]
  - PYREXIA [None]
  - SEROTONIN SYNDROME [None]
